FAERS Safety Report 10423027 (Version 1)
Quarter: 2014Q3

REPORT INFORMATION
  Report Type: Spontaneous
  Country: FR (occurrence: FR)
  Receive Date: 20140902
  Receipt Date: 20140902
  Transmission Date: 20150326
  Serious: Yes (Hospitalization)
  Sender: FDA-Public Use
  Company Number: FR-ROCHE-1457215

PATIENT
  Age: 34 Year
  Sex: Female

DRUGS (2)
  1. CELLCEPT [Suspect]
     Active Substance: MYCOPHENOLATE MOFETIL\MYCOPHENOLATE MOFETIL HYDROCHLORIDE
     Indication: SPONDYLITIS
     Route: 048
     Dates: start: 201405, end: 20140815
  2. VOLTARENE [Suspect]
     Active Substance: DICLOFENAC SODIUM
     Indication: SPONDYLITIS
     Route: 048
     Dates: start: 20140811, end: 20140815

REACTIONS (1)
  - Agranulocytosis [Not Recovered/Not Resolved]

NARRATIVE: CASE EVENT DATE: 20140816
